FAERS Safety Report 4435131-3 (Version None)
Quarter: 2004Q3

REPORT INFORMATION
  Report Type: 
  Country: None (occurrence: None)
  Receive Date: 20040826
  Receipt Date: 20040818
  Transmission Date: 20050211
  Serious: Yes (Other)
  Sender: FDA-Public Use
  Company Number: GBWYE780225MAY04

PATIENT
  Sex: Female

DRUGS (9)
  1. PREMARIN [Suspect]
  2. AUGMENTIN [Suspect]
  3. CO-DYDRAMOL (DIHYDROCODEINE BITARTRATE/PARACETAMOL) [Suspect]
  4. FLUOXETINE [Suspect]
  5. HUMIRA [Suspect]
  6. METHOTREXATE [Suspect]
  7. ROFECOXIB [Suspect]
  8. CLAVULIN (AMOXICILLIN TRIHYDRATE/CLAVULANATE POTASSIUM) [Concomitant]
  9. PARAMOL-118 (DIHYDROCODEINE BITARTRATE/PARACETAMOL) [Concomitant]

REACTIONS (1)
  - RETINAL HAEMORRHAGE [None]
